FAERS Safety Report 14435062 (Version 1)
Quarter: 2018Q1

REPORT INFORMATION
  Report Type: Spontaneous
  Country: US (occurrence: US)
  Receive Date: 20180124
  Receipt Date: 20180124
  Transmission Date: 20180509
  Serious: Yes (Hospitalization)
  Sender: FDA-Public Use
  Company Number: None

PATIENT
  Age: 60 Year
  Sex: Female

DRUGS (1)
  1. METOPROLOL SUCCINATE ER 25MG ACTAVIS [Suspect]
     Active Substance: METOPROLOL SUCCINATE
     Route: 048
     Dates: start: 201202

REACTIONS (4)
  - Blood pressure increased [None]
  - Dizziness [None]
  - Heart rate decreased [None]
  - Somnolence [None]

NARRATIVE: CASE EVENT DATE: 20171220
